FAERS Safety Report 5155919-3 (Version None)
Quarter: 2006Q4

REPORT INFORMATION
  Report Type: 
  Country: None (occurrence: None)
  Receive Date: 20061114
  Receipt Date: 20061030
  Transmission Date: 20070319
  Serious: Yes (Hospitalization)
  Sender: FDA-Public Use
  Company Number: 2006059648

PATIENT
  Age: 55 Year
  Sex: Female
  Weight: 94.5 kg

DRUGS (6)
  1. SUTENT [Suspect]
     Indication: NON-SMALL CELL LUNG CANCER
     Dosage: 37.5 MG (37.5 MG, 1 IN 1 D), ORAL
     Route: 048
     Dates: start: 20060306
  2. GLIPIZIDE [Concomitant]
  3. TRICOR [Concomitant]
  4. LIPITOR [Concomitant]
  5. LISINOPRIL [Concomitant]
  6. ZYRTEC [Concomitant]

REACTIONS (9)
  - ABDOMINAL PAIN [None]
  - CLOSTRIDIUM DIFFICILE COLITIS [None]
  - COLITIS [None]
  - DIARRHOEA [None]
  - DRUG TOXICITY [None]
  - GASTROENTERITIS [None]
  - INGUINAL HERNIA [None]
  - NAUSEA [None]
  - VOMITING [None]
